FAERS Safety Report 6069703-X (Version None)
Quarter: 2009Q1

REPORT INFORMATION
  Report Type: 
  Country: None (occurrence: None)
  Receive Date: 20090209
  Receipt Date: 20090203
  Transmission Date: 20090719
  Serious: Yes (Other)
  Sender: FDA-Public Use
  Company Number: US-ASTRAZENECA-2009UW03173

PATIENT
  Age: 867 Month
  Sex: Female
  Weight: 97.5 kg

DRUGS (13)
  1. ARIMIDEX [Suspect]
     Indication: BREAST CANCER
     Route: 048
     Dates: start: 20081101
  2. METOPROLOL TARTRATE [Concomitant]
     Route: 048
  3. LISINOPRIL [Concomitant]
     Route: 048
  4. TRICOR [Concomitant]
  5. INSULIN [Concomitant]
  6. METFORMIN [Concomitant]
  7. OPTIPRANOLOL [Concomitant]
  8. XALATAN [Concomitant]
  9. ALPHAGAN [Concomitant]
  10. COENZYME Q10 [Concomitant]
  11. ALPHA LIPOIC ACID [Concomitant]
  12. CENTRUM SILVER [Concomitant]
  13. ASPIRIN [Concomitant]

REACTIONS (3)
  - HYPERGLYCAEMIA [None]
  - HYPOVITAMINOSIS [None]
  - INCREASED APPETITE [None]
